FAERS Safety Report 24300581 (Version 1)
Quarter: 2024Q3

REPORT INFORMATION
  Report Type: Spontaneous
  Country: US (occurrence: US)
  Receive Date: 20240910
  Receipt Date: 20240910
  Transmission Date: 20241017
  Serious: No
  Sender: ASTELLAS
  Company Number: US-ASTELLAS-2024-AER-003203

PATIENT
  Sex: Male

DRUGS (1)
  1. XTANDI [Suspect]
     Active Substance: ENZALUTAMIDE
     Indication: Product used for unknown indication
     Dosage: 80 MG (2 DAILY), UNKNOWN FREQUENCY
     Route: 065

REACTIONS (3)
  - Sluggishness [Unknown]
  - Peripheral swelling [Unknown]
  - Asthenia [Unknown]
